FAERS Safety Report 9914246 (Version 1)
Quarter: 2014Q1

REPORT INFORMATION
  Report Type: Spontaneous
  Country: US (occurrence: None)
  Receive Date: 20140219
  Receipt Date: 20140219
  Transmission Date: 20141002
  Serious: No
  Sender: FDA-Public Use
  Company Number: None

PATIENT
  Age: 38 Year
  Sex: Female
  Weight: 58.51 kg

DRUGS (1)
  1. BUPROPION [Suspect]
     Dosage: 1 PILLS  TWICE DAILY  TAKEN BY MOUTH
     Route: 048
     Dates: start: 20140214, end: 20140218

REACTIONS (5)
  - Anxiety [None]
  - Panic attack [None]
  - Suicidal ideation [None]
  - Emotional distress [None]
  - Product substitution issue [None]
